FAERS Safety Report 7912221-1 (Version None)
Quarter: 2011Q4

REPORT INFORMATION
  Report Type: 
  Country: None (occurrence: None)
  Receive Date: 20111114
  Receipt Date: 20111107
  Transmission Date: 20120403
  Serious: Yes (Hospitalization)
  Sender: FDA-Public Use
  Company Number: US-B.I. PHARMACEUTICALS,INC./RIDGEFIELD-2011-BP-24614BP

PATIENT
  Age: 86 Year
  Sex: Male
  Weight: 73.48 kg

DRUGS (4)
  1. LUPRON [Concomitant]
     Indication: PROSTATE CANCER
  2. NAROPIN [Concomitant]
  3. PRADAXA [Suspect]
     Dates: start: 20101201, end: 20110901
  4. FLOMAX [Concomitant]

REACTIONS (2)
  - PERIPHERAL EMBOLISM [None]
  - PAIN IN EXTREMITY [None]
